FAERS Safety Report 8218815-0 (Version None)
Quarter: 2012Q1

REPORT INFORMATION
  Report Type: 
  Country: None (occurrence: None)
  Receive Date: 20120319
  Receipt Date: 20120313
  Transmission Date: 20120608
  Serious: Yes (Life-Threatening, Hospitalization)
  Sender: FDA-Public Use
  Company Number: PHHO2011JP13069

PATIENT
  Sex: Male
  Weight: 76 kg

DRUGS (3)
  1. SPA100A [Suspect]
     Indication: HYPERTENSION
     Dosage: 150/2.5 MG, DAILY
     Route: 048
     Dates: start: 20110111
  2. SPA100A [Suspect]
     Dosage: 150/2.5 MG, DAILY
     Route: 048
     Dates: start: 20110125, end: 20110728
  3. LASIX [Suspect]
     Indication: OEDEMA
     Dosage: UNK
     Dates: end: 20110825

REACTIONS (3)
  - LUNG ADENOCARCINOMA METASTATIC [None]
  - METASTASES TO ADRENALS [None]
  - METASTASES TO CENTRAL NERVOUS SYSTEM [None]
